FAERS Safety Report 6538552-8 (Version None)
Quarter: 2010Q1

REPORT INFORMATION
  Report Type: 
  Country: None (occurrence: None)
  Receive Date: 20100113
  Receipt Date: 20100113
  Transmission Date: 20100710
  Serious: Yes (Life-Threatening, Hospitalization)
  Sender: FDA-Public Use
  Company Number: None

PATIENT
  Age: 27 Year
  Sex: Female
  Weight: 111 kg

DRUGS (2)
  1. NUCYNTA [Suspect]
     Indication: PAIN
     Dosage: 1-2 TABLETS QID
  2. VENLAFAXINE [Concomitant]

REACTIONS (3)
  - CARDIAC ARREST [None]
  - SYNCOPE [None]
  - VENTRICULAR TACHYCARDIA [None]
